FAERS Safety Report 18553617 (Version 1)
Quarter: 2020Q4

REPORT INFORMATION
  Report Type: Spontaneous
  Country: US (occurrence: US)
  Receive Date: 20201125
  Receipt Date: 20201125
  Transmission Date: 20210114
  Serious: No
  Sender: FDA-Public Use
  Company Number: None

PATIENT
  Sex: Female

DRUGS (1)
  1. RINSE-FREE HAND SANITIZER [Suspect]
     Active Substance: CHLOROXYLENOL
     Indication: INFECTION PROPHYLAXIS

REACTIONS (3)
  - Skin irritation [None]
  - Skin exfoliation [None]
  - Haemorrhage [None]

NARRATIVE: CASE EVENT DATE: 20200630
